FAERS Safety Report 18250193 (Version 3)
Quarter: 2022Q2

REPORT INFORMATION
  Report Type: Spontaneous
  Country: FR (occurrence: FR)
  Receive Date: 20200909
  Receipt Date: 20220425
  Transmission Date: 20220721
  Serious: Yes (Other)
  Sender: FDA-Public Use
  Company Number: FR-MYLANLABS-2020M1070285

PATIENT
  Age: 35 Year
  Sex: Female

DRUGS (8)
  1. OXYCODONE HYDROCHLORIDE [Suspect]
     Active Substance: OXYCODONE HYDROCHLORIDE
     Indication: Pain
     Dosage: 60 MG, UNK
     Route: 048
  2. FLUDROCORTISONE [Suspect]
     Active Substance: FLUDROCORTISONE
     Indication: Adrenal insufficiency
     Dosage: UNK
     Route: 065
  3. HYDROCORTISONE [Suspect]
     Active Substance: HYDROCORTISONE
     Indication: Adrenal insufficiency
     Dosage: 2 TO 3 ADMINISTRATIONS PER DAY, 10 MG IN THE MORNING, 5 MG AT
     Route: 058
  4. HYDROCORTISONE [Suspect]
     Active Substance: HYDROCORTISONE
     Dosage: 2 TO 3 ADMINISTRATIONS PER DAY, 10 MG IN THE MORNING, 5 MG AT NOON AND 5 MG AT 4 P.M
     Route: 048
  5. FENTANYL [Suspect]
     Active Substance: FENTANYL
     Indication: Pain
     Dosage: 75 MG, Q3D
     Route: 062
  6. PREDNISONE [Suspect]
     Active Substance: PREDNISONE
     Indication: Product used for unknown indication
     Dosage: 2 MG IN THE MORNING AND 3 MG IN THE EVENING, THEN 5 MG IN THE MORNING FOR 1 YEAR
     Route: 065
  7. PRASTERONE [Suspect]
     Active Substance: PRASTERONE
     Indication: Adrenal insufficiency
     Dosage: UNK
     Route: 065
  8. PRASTERONE [Suspect]
     Active Substance: PRASTERONE
     Indication: Product used for unknown indication
     Dosage: UNKNOWN
     Route: 065

REACTIONS (7)
  - Ankylosing spondylitis [Unknown]
  - Arthralgia [Unknown]
  - Weight increased [Unknown]
  - Asthenia [Recovering/Resolving]
  - Disturbance in attention [Unknown]
  - Dermatitis allergic [Recovering/Resolving]
  - Drug ineffective [Unknown]
